FAERS Safety Report 7586673-3 (Version None)
Quarter: 2011Q3

REPORT INFORMATION
  Report Type: 
  Country: None (occurrence: None)
  Receive Date: 20110701
  Receipt Date: 20110622
  Transmission Date: 20111222
  Serious: Yes (Hospitalization, Other)
  Sender: FDA-Public Use
  Company Number: US-ELI_LILLY_AND_COMPANY-US201002003683

PATIENT
  Sex: Male
  Weight: 88.435 kg

DRUGS (16)
  1. ACTOS [Concomitant]
     Indication: DIABETES MELLITUS
     Dosage: 30 MG, QD
  2. BYETTA [Suspect]
     Dosage: 5 UG, BID
     Route: 065
     Dates: start: 20060113
  3. OMEPRAZOLE [Concomitant]
     Indication: GASTROOESOPHAGEAL REFLUX DISEASE
     Dosage: UNK
     Dates: start: 20000101
  4. GLYBURIDE [Concomitant]
     Indication: DIABETES MELLITUS
     Dosage: UNK
     Dates: start: 20050101, end: 20060113
  5. MAGNESIUM [Concomitant]
     Dosage: 400 MG, QD
  6. ZETIA [Concomitant]
     Dosage: 10 MG, QD
  7. TRICOR [Concomitant]
     Dosage: 145 MG, QD
  8. HYDROCHLOROTHIAZIDE [Concomitant]
     Dosage: 12.5 MG, QD
  9. FERROUS SULFATE TAB [Concomitant]
     Route: 048
  10. GLYBURIDE [Concomitant]
  11. BYETTA [Suspect]
     Dosage: 10 UG, BID
     Dates: end: 20080110
  12. FERROUS SULFATE TAB [Concomitant]
     Route: 042
  13. LISINOPRIL [Concomitant]
     Dosage: 20 MG, QD
  14. NEXIUM [Concomitant]
     Dosage: 40 MG, QD
  15. TYLENOL                                 /SCH/ [Concomitant]
     Indication: PYREXIA
     Dosage: UNK
     Dates: start: 20000101
  16. HUMULIN                            /00646001/ [Concomitant]
     Dosage: 10 U, BID

REACTIONS (5)
  - DIABETES MELLITUS [None]
  - IRON DEFICIENCY ANAEMIA [None]
  - EYE DISORDER [None]
  - PANCREATITIS [None]
  - PYREXIA [None]
